FAERS Safety Report 21467612 (Version 2)
Quarter: 2022Q4

REPORT INFORMATION
  Report Type: Spontaneous
  Country: US (occurrence: US)
  Receive Date: 20221017
  Receipt Date: 20221017
  Transmission Date: 20230113
  Serious: No
  Sender: FDA-Public Use
  Company Number: US-ALLERGAN-2135527US

PATIENT
  Sex: Male

DRUGS (2)
  1. LINZESS [Suspect]
     Active Substance: LINACLOTIDE
     Indication: Constipation
  2. LINZESS [Suspect]
     Active Substance: LINACLOTIDE
     Indication: Constipation

REACTIONS (2)
  - Off label use [Unknown]
  - Drug ineffective [Unknown]
